FAERS Safety Report 12434882 (Version 2)
Quarter: 2017Q1

REPORT INFORMATION
  Report Type: Report from Study
  Country: FR (occurrence: FR)
  Receive Date: 20160603
  Receipt Date: 20170309
  Transmission Date: 20170428
  Serious: Yes (Other)
  Sender: FDA-Public Use
  Company Number: PHHY2016FR075145

PATIENT
  Age: 59 Year
  Sex: Male

DRUGS (14)
  1. CERTICAN [Suspect]
     Active Substance: EVEROLIMUS
     Indication: LIVER TRANSPLANT
     Dosage: 5.5 MG, QD
     Route: 048
     Dates: start: 20131019, end: 20131029
  2. CERTICAN [Suspect]
     Active Substance: EVEROLIMUS
     Dosage: 3.5 MG, QD
     Route: 048
     Dates: start: 20160412
  3. CERTICAN [Suspect]
     Active Substance: EVEROLIMUS
     Dosage: 6 MG, QD
     Route: 048
     Dates: start: 20131214, end: 20140904
  4. MYFORTIC [Suspect]
     Active Substance: MYCOPHENOLATE SODIUM
     Dosage: 720 MG, QD
     Route: 065
     Dates: start: 20131214, end: 20131216
  5. MYFORTIC [Suspect]
     Active Substance: MYCOPHENOLATE SODIUM
     Dosage: 360 MG, QD
     Route: 065
     Dates: start: 20131217, end: 20131217
  6. CORTANCYL [Concomitant]
     Active Substance: PREDNISONE
     Dosage: 5 MG, QD
     Route: 065
     Dates: start: 20131218
  7. MYFORTIC [Suspect]
     Active Substance: MYCOPHENOLATE SODIUM
     Indication: IMMUNOSUPPRESSANT DRUG THERAPY
     Dosage: 360 MG, QD
     Route: 065
     Dates: start: 20131212, end: 20131213
  8. CORTANCYL [Concomitant]
     Active Substance: PREDNISONE
     Indication: IMMUNOSUPPRESSANT DRUG THERAPY
     Dosage: 5 MG, QD
     Route: 065
     Dates: start: 20130928, end: 20131216
  9. CERTICAN [Suspect]
     Active Substance: EVEROLIMUS
     Dosage: 3 MG, QD
     Route: 048
     Dates: start: 20131212, end: 20131213
  10. CERTICAN [Suspect]
     Active Substance: EVEROLIMUS
     Dosage: 7 MG, QD
     Route: 048
     Dates: start: 20140905, end: 20150305
  11. CERTICAN [Suspect]
     Active Substance: EVEROLIMUS
     Dosage: 5.5 MG, QD
     Route: 048
     Dates: start: 20150306, end: 20160411
  12. MYFORTIC [Suspect]
     Active Substance: MYCOPHENOLATE SODIUM
     Dosage: 720 MG, QD
     Route: 065
     Dates: start: 20131218
  13. CERTICAN [Suspect]
     Active Substance: EVEROLIMUS
     Indication: IMMUNOSUPPRESSANT DRUG THERAPY
     Dosage: 6 MG, QD
     Route: 048
     Dates: start: 20131031, end: 20131211
  14. MYFORTIC [Suspect]
     Active Substance: MYCOPHENOLATE SODIUM
     Indication: LIVER TRANSPLANT
     Dosage: 720 MG, QD
     Route: 065
     Dates: start: 20131019, end: 20131211

REACTIONS (6)
  - Portal tract inflammation [Not Recovered/Not Resolved]
  - Lower respiratory tract congestion [Recovered/Resolved]
  - Inflammation [Recovered/Resolved]
  - Cholestasis [Not Recovered/Not Resolved]
  - Pyrexia [Recovered/Resolved]
  - Donor specific antibody present [Not Recovered/Not Resolved]

NARRATIVE: CASE EVENT DATE: 20150305
